FAERS Safety Report 21220323 (Version 1)
Quarter: 2022Q3

REPORT INFORMATION
  Report Type: Spontaneous
  Country: US (occurrence: US)
  Receive Date: 20220817
  Receipt Date: 20220817
  Transmission Date: 20221027
  Serious: Yes (Hospitalization)
  Sender: FDA-Public Use
  Company Number: US-BRISTOL-MYERS SQUIBB COMPANY-2022-080715

PATIENT
  Age: 75 Year
  Sex: Female
  Weight: 89.811 kg

DRUGS (1)
  1. ELIQUIS [Suspect]
     Active Substance: APIXABAN
     Indication: Cerebrovascular accident prophylaxis
     Dosage: TWO TIMES A DAY
     Route: 048
     Dates: start: 2019

REACTIONS (2)
  - Hospitalisation [Unknown]
  - Circumstance or information capable of leading to medication error [Unknown]
